FAERS Safety Report 4963579-7 (Version None)
Quarter: 2006Q1

REPORT INFORMATION
  Report Type: 
  Country: None (occurrence: None)
  Receive Date: 20060330
  Receipt Date: 20060316
  Transmission Date: 20060701
  Serious: Yes (Hospitalization)
  Sender: FDA-Public Use
  Company Number: FR-2006-005794

PATIENT
  Age: 47 Year
  Sex: Female

DRUGS (5)
  1. BETASERON [Suspect]
     Indication: RELAPSING-REMITTING MULTIPLE SCLEROSIS
     Dosage: 8 OR 16 MIU EVERY 2D, SUBCUTANEOUS
     Route: 058
     Dates: start: 20040519
  2. CARTEOLOL HCL [Concomitant]
  3. ORAL CONTRACEPTIVE NOS [Concomitant]
  4. PROGESTOGEL [Concomitant]
  5. COPAXONE [Suspect]

REACTIONS (4)
  - METRORRHAGIA [None]
  - OVARIAN MASS [None]
  - PELVIC PAIN [None]
  - UTERINE MASS [None]
